FAERS Safety Report 4644384-8 (Version None)
Quarter: 2005Q2

REPORT INFORMATION
  Report Type: 
  Country: None (occurrence: None)
  Receive Date: 20050331
  Receipt Date: 20041217
  Transmission Date: 20051028
  Serious: No
  Sender: FDA-Public Use
  Company Number: 04P-163-0283891-00

PATIENT
  Age: 77 Year
  Sex: Female

DRUGS (5)
  1. HUMIRA [Suspect]
     Indication: RHEUMATOID ARTHRITIS
     Dosage: 40 MG, 1 IN 2 WK, SUBCUTANEOUS
     Route: 058
     Dates: start: 20040701
  2. LEVOTHYROXINE SODIUM [Concomitant]
  3. DYAZIDE [Concomitant]
  4. PREDNISONE [Concomitant]
  5. LORAZEPAM [Concomitant]

REACTIONS (1)
  - PRURITUS [None]
